FAERS Safety Report 7258656-4 (Version None)
Quarter: 2011Q1

REPORT INFORMATION
  Report Type: 
  Country: None (occurrence: None)
  Receive Date: 20110129
  Receipt Date: 20100730
  Transmission Date: 20110831
  Serious: No
  Sender: FDA-Public Use
  Company Number: US-ABBOTT-09P-163-0594859-00

PATIENT
  Sex: Male
  Weight: 127.12 kg

DRUGS (14)
  1. OLUX [Concomitant]
     Route: 061
  2. HUMIRA [Suspect]
  3. ENBREL [Concomitant]
     Indication: PSORIATIC ARTHROPATHY
     Dates: start: 20080101, end: 20090101
  4. ENBREL [Concomitant]
     Indication: PSORIASIS
  5. HUMIRA [Suspect]
     Indication: PSORIATIC ARTHROPATHY
     Route: 058
     Dates: start: 20080101, end: 20080101
  6. PREDNISONE [Concomitant]
     Route: 048
  7. MULTI-VITAMIN [Concomitant]
     Route: 048
  8. FISH OIL [Concomitant]
  9. METFORMIN [Concomitant]
     Indication: TYPE 2 DIABETES MELLITUS
     Route: 048
  10. CLOBEX [Concomitant]
     Route: 061
  11. REMICADE [Concomitant]
     Indication: PSORIATIC ARTHROPATHY
     Route: 042
     Dates: start: 20070101, end: 20080101
  12. REMICADE [Concomitant]
     Indication: PSORIASIS
     Route: 042
     Dates: start: 20090801
  13. HUMIRA [Suspect]
     Indication: PSORIASIS
     Route: 058
  14. VITAMIN E [Concomitant]

REACTIONS (8)
  - DRUG INEFFECTIVE [None]
  - PSORIASIS [None]
  - RASH [None]
  - ERYTHEMA [None]
  - HYPERSENSITIVITY [None]
  - ARTHRALGIA [None]
  - PRURITUS [None]
  - URTICARIA [None]
